FAERS Safety Report 4498325-7 (Version None)
Quarter: 2004Q4

REPORT INFORMATION
  Report Type: 
  Country: None (occurrence: None)
  Receive Date: 20041104
  Receipt Date: 20041020
  Transmission Date: 20050328
  Serious: Yes (Hospitalization)
  Sender: FDA-Public Use
  Company Number: 2004AP05448

PATIENT
  Age: 42 Year
  Sex: Female

DRUGS (7)
  1. ZOLADEX [Suspect]
     Indication: INFLAMMATORY CARCINOMA OF THE BREAST
     Dosage: 3.6 MG SQ
  2. TAMOXIFEN CITRATE [Suspect]
     Indication: INFLAMMATORY CARCINOMA OF THE BREAST
  3. TAMOXIFEN CITRATE [Suspect]
     Indication: INFLAMMATORY CARCINOMA OF THE BREAST
  4. CYCLOPHOSPHAMIDE [Concomitant]
  5. CYCLOPHOSPHAMIDE [Concomitant]
  6. FLUOROURACIL [Concomitant]
  7. RADIATION THERAPY [Concomitant]

REACTIONS (3)
  - MALIGNANT PLEURAL EFFUSION [None]
  - PERICARDIAL EFFUSION [None]
  - PLEURAL EFFUSION [None]
